FAERS Safety Report 9810445 (Version 2)
Quarter: 2015Q3

REPORT INFORMATION
  Report Type: Spontaneous
  Country: US (occurrence: US)
  Receive Date: 20140110
  Receipt Date: 20150719
  Transmission Date: 20151125
  Serious: Yes (Death, Other)
  Sender: FDA-Public Use
  Company Number: US-SANOFI-AVENTIS-2013SA081866

PATIENT
  Age: 57 Year
  Sex: Male

DRUGS (3)
  1. PLAVIX [Suspect]
     Active Substance: CLOPIDOGREL BISULFATE
     Indication: STENT PLACEMENT
     Route: 065
     Dates: start: 20020824, end: 20020907
  2. ECOTRIN [Concomitant]
     Active Substance: ASPIRIN
     Dosage: ONCE A DAY X2
  3. ECOTRIN [Concomitant]
     Active Substance: ASPIRIN
     Dates: start: 1984, end: 20020824

REACTIONS (5)
  - Azotaemia [Unknown]
  - Death [Fatal]
  - Chronic kidney disease [Unknown]
  - Haemorrhage [Unknown]
  - Thrombotic thrombocytopenic purpura [Unknown]

NARRATIVE: CASE EVENT DATE: 20020921
